APPROVED DRUG PRODUCT: VERTAVIS
Active Ingredient: VERATRUM VIRIDE ROOT
Strength: 130CSR UNIT
Dosage Form/Route: TABLET;ORAL
Application: N005691 | Product #002
Applicant: MEDPOINTE PHARMACEUTICALS MEDPOINTE HEALTHCARE INC
Approved: Approved Prior to Jan 1, 1982 | RLD: No | RS: No | Type: DISCN